FAERS Safety Report 24233062 (Version 2)
Quarter: 2024Q3

REPORT INFORMATION
  Report Type: Spontaneous
  Country: BR (occurrence: BR)
  Receive Date: 20240821
  Receipt Date: 20240906
  Transmission Date: 20241016
  Serious: Yes (Other)
  Sender: ELI LILLY AND CO
  Company Number: BR-ELI_LILLY_AND_COMPANY-BR202408006873

PATIENT
  Sex: Female

DRUGS (5)
  1. BASAGLAR [Suspect]
     Active Substance: INSULIN GLARGINE
     Indication: Diabetes mellitus
     Dosage: 23 INTERNATIONAL UNIT, UNKNOWN
     Route: 065
     Dates: start: 2014
  2. BASAGLAR [Suspect]
     Active Substance: INSULIN GLARGINE
     Indication: Diabetes mellitus
     Dosage: 23 INTERNATIONAL UNIT, UNKNOWN
     Route: 065
     Dates: start: 2014
  3. BASAGLAR [Suspect]
     Active Substance: INSULIN GLARGINE
     Dosage: 22 INTERNATIONAL UNIT, DAILY
     Route: 065
     Dates: start: 2022
  4. BASAGLAR [Suspect]
     Active Substance: INSULIN GLARGINE
     Dosage: 22 INTERNATIONAL UNIT, DAILY
     Route: 065
     Dates: start: 2022
  5. PIOGLITAZONE HYDROCHLORIDE [Suspect]
     Active Substance: PIOGLITAZONE HYDROCHLORIDE
     Indication: Product used for unknown indication
     Dosage: UNK UNK, UNKNOWN
     Route: 065

REACTIONS (6)
  - Hypoacusis [Unknown]
  - Pterygium [Unknown]
  - Eye haemorrhage [Unknown]
  - Discomfort [Unknown]
  - Incorrect dose administered [Unknown]
  - Blood glucose decreased [Unknown]

NARRATIVE: CASE EVENT DATE: 20190101
